FAERS Safety Report 6886288-6 (Version None)
Quarter: 2010Q3

REPORT INFORMATION
  Report Type: 
  Country: None (occurrence: None)
  Receive Date: 20100729
  Receipt Date: 20090511
  Transmission Date: 20110219
  Serious: Yes (Hospitalization, Other)
  Sender: FDA-Public Use
  Company Number: US-PFIZER INC-2009211814

PATIENT
  Sex: Female
  Weight: 89.811 kg

DRUGS (5)
  1. CELEBREX [Suspect]
     Indication: ARTHRITIS
     Dosage: 200 MG, 1X/DAY
     Dates: start: 20090101
  2. CELEBREX [Suspect]
     Indication: ARTHRALGIA
  3. ALLEGRA [Concomitant]
  4. FLONASE [Concomitant]
  5. BENICAR HCT [Concomitant]

REACTIONS (1)
  - HYPOAESTHESIA [None]
